FAERS Safety Report 4682104-1 (Version None)
Quarter: 2005Q2

REPORT INFORMATION
  Report Type: 
  Country: None (occurrence: None)
  Receive Date: 20050602
  Receipt Date: 20050302
  Transmission Date: 20051028
  Serious: Yes (Other)
  Sender: FDA-Public Use
  Company Number: 2005-00412

PATIENT
  Sex: 0

DRUGS (2)
  1. INTEGRILIN [Suspect]
     Indication: CORONARY ANGIOPLASTY
     Dosage: SEE IMAGE
     Route: 040
  2. HEPARIN [Suspect]
     Dosage: 30.00 IU/KG

REACTIONS (2)
  - FEMORAL BRUIT [None]
  - VASCULAR PROCEDURE COMPLICATION [None]
